FAERS Safety Report 6028613-4 (Version None)
Quarter: 2009Q1

REPORT INFORMATION
  Report Type: 
  Country: None (occurrence: None)
  Receive Date: 20090106
  Receipt Date: 20081218
  Transmission Date: 20090719
  Serious: Yes (Hospitalization, Other)
  Sender: FDA-Public Use
  Company Number: US-PFIZER INC-2008095165

PATIENT
  Age: 59 Year
  Sex: Female

DRUGS (6)
  1. CHANTIX [Suspect]
     Indication: SMOKING CESSATION THERAPY
     Dosage: UNK
     Dates: start: 20070701, end: 20070101
  2. MIRAPEX [Suspect]
     Dosage: UNK
  3. SEROQUEL [Suspect]
     Indication: DEPRESSION
  4. SEROQUEL [Suspect]
     Dates: end: 20070101
  5. XANAX [Concomitant]
     Indication: BIPOLAR DISORDER
     Dosage: UNK
  6. PROZAC [Concomitant]
     Indication: BIPOLAR DISORDER
     Dosage: UNK

REACTIONS (11)
  - ANXIETY [None]
  - DEPRESSION [None]
  - ECONOMIC PROBLEM [None]
  - EMOTIONAL DISTRESS [None]
  - MEMORY IMPAIRMENT [None]
  - OEDEMA PERIPHERAL [None]
  - OVERDOSE [None]
  - PAIN [None]
  - PULMONARY EMBOLISM [None]
  - SUICIDAL IDEATION [None]
  - SUICIDE ATTEMPT [None]
